FAERS Safety Report 5265484-8 (Version None)
Quarter: 2007Q1

REPORT INFORMATION
  Report Type: 
  Country: None (occurrence: None)
  Receive Date: 20061213
  Receipt Date: 20040310
  Transmission Date: 20070707
  Serious: Yes (Other)
  Sender: FDA-Public Use
  Company Number: 2004UW04527

PATIENT
  Age: 78 Year
  Sex: Male
  Weight: 85.7298 kg

DRUGS (7)
  1. IRESSA [Suspect]
     Indication: NON-SMALL CELL LUNG CANCER
     Dosage: 250 MG PO
     Route: 048
     Dates: start: 20040128
  2. CARDURA [Concomitant]
  3. CELEXA [Concomitant]
  4. M.V.I. [Concomitant]
  5. ASCORBIC ACID [Concomitant]
  6. IMODIUM [Concomitant]
  7. KEFLEX [Concomitant]

REACTIONS (4)
  - ANAL DISCOMFORT [None]
  - DYSURIA [None]
  - EXCORIATION [None]
  - RASH [None]
